FAERS Safety Report 7520954-4 (Version None)
Quarter: 2011Q2

REPORT INFORMATION
  Report Type: 
  Country: None (occurrence: None)
  Receive Date: 20110603
  Receipt Date: 20100210
  Transmission Date: 20111010
  Serious: Yes (Hospitalization, Other)
  Sender: FDA-Public Use
  Company Number: NL-BAYER-200826032GPV

PATIENT
  Age: 70 Year
  Sex: Male

DRUGS (4)
  1. NEXAVAR [Suspect]
     Route: 048
     Dates: start: 20080901, end: 20091113
  2. NEXAVAR [Suspect]
     Route: 048
     Dates: start: 20091114
  3. NEXAVAR [Suspect]
     Indication: METASTATIC RENAL CELL CARCINOMA
     Route: 048
     Dates: start: 20080501, end: 20080901
  4. CITALOPRAM HYDROBROMIDE [Concomitant]
     Indication: TYPE 2 DIABETES MELLITUS
     Route: 048

REACTIONS (15)
  - MUSCLE SPASMS [None]
  - DEHYDRATION [None]
  - DIARRHOEA [None]
  - PAIN IN EXTREMITY [None]
  - WEIGHT DECREASED [None]
  - FATIGUE [None]
  - MYALGIA [None]
  - PALMAR-PLANTAR ERYTHRODYSAESTHESIA SYNDROME [None]
  - METASTATIC PAIN [None]
  - ARTHRALGIA [None]
  - PNEUMONIA BACTERIAL [None]
  - GASTROENTERITIS ESCHERICHIA COLI [None]
  - POLYARTHRITIS [None]
  - ABDOMINAL PAIN [None]
  - RASH [None]
